FAERS Safety Report 5107107-4 (Version None)
Quarter: 2006Q3

REPORT INFORMATION
  Report Type: 
  Country: None (occurrence: None)
  Receive Date: 20060913
  Receipt Date: 20060829
  Transmission Date: 20061208
  Serious: Yes (Death)
  Sender: FDA-Public Use
  Company Number: 2006S1007031

PATIENT
  Age: 53 Year
  Sex: Male

DRUGS (10)
  1. CLOZAPINE [Suspect]
     Dosage: 900 MG;Q24;PO
     Route: 048
     Dates: end: 20060701
  2. PERPHENAZINE [Concomitant]
  3. BENZTROPINE MESYLATE [Concomitant]
  4. DOXEPIN [Concomitant]
  5. PAROXETINE HCL [Concomitant]
  6. MULTIVITAMINS W/MINERALS [Concomitant]
  7. ESOMEPRAZOLE MAGNESIUM [Concomitant]
  8. SULFADIAZINE SILVER [Concomitant]
  9. HYDROXYZINE [Concomitant]
  10. DOCUSATE SODIUM [Concomitant]

REACTIONS (1)
  - PHLEBOTOMY [None]
